FAERS Safety Report 4366133-3 (Version None)
Quarter: 2004Q2

REPORT INFORMATION
  Report Type: 
  Country: None (occurrence: None)
  Receive Date: 20040524
  Receipt Date: 20040514
  Transmission Date: 20050107
  Serious: Yes (Death, Hospitalization, Other)
  Sender: FDA-Public Use
  Company Number: 2004208123BE

PATIENT
  Age: 65 Year
  Sex: Male
  Weight: 85 kg

DRUGS (15)
  1. BEXTRA [Suspect]
     Indication: HIP ARTHROPLASTY
     Dosage: 20 MG, QD, ORAL
     Route: 048
     Dates: start: 20040115, end: 20040201
  2. AMLODIPINE BESYLATE [Concomitant]
  3. DIMITONE [Concomitant]
  4. PLAVIX [Concomitant]
  5. STAURODORM (CARBROMAL, BENACTYZINE, METHAQUALONE HYDROCHLORIDE) [Concomitant]
  6. NOZINAN [Concomitant]
  7. XANAX [Concomitant]
  8. EFFEXOR [Concomitant]
  9. PAROXETINE HCL [Concomitant]
  10. TRAMADOL HCL [Concomitant]
  11. PRAZEPAM [Concomitant]
  12. CELEBREX [Concomitant]
  13. ROFECOXIB [Concomitant]
  14. NOOTROPIL [Concomitant]
  15. ACETAMINOPHEN [Concomitant]

REACTIONS (7)
  - ALANINE AMINOTRANSFERASE INCREASED [None]
  - ASPARTATE AMINOTRANSFERASE INCREASED [None]
  - DYSPNOEA [None]
  - GAMMA-GLUTAMYLTRANSFERASE INCREASED [None]
  - SHOCK [None]
  - TACHYPNOEA [None]
  - TOXIC EPIDERMAL NECROLYSIS [None]
